FAERS Safety Report 4355789-7 (Version None)
Quarter: 2004Q2

REPORT INFORMATION
  Report Type: 
  Country: None (occurrence: None)
  Receive Date: 20040511
  Receipt Date: 20040427
  Transmission Date: 20050107
  Serious: Yes (Other)
  Sender: FDA-Public Use
  Company Number: PHEH2004US04681

PATIENT
  Age: 72 Year
  Sex: Female

DRUGS (1)
  1. MIACALCIN [Suspect]
     Indication: BONE DISORDER

REACTIONS (3)
  - BACK PAIN [None]
  - COMPRESSION FRACTURE [None]
  - DIFFICULTY IN WALKING [None]
